FAERS Safety Report 8515115-6 (Version None)
Quarter: 2012Q3

REPORT INFORMATION
  Report Type: 
  Country: None (occurrence: None)
  Receive Date: 20120717
  Receipt Date: 20120706
  Transmission Date: 20120928
  Serious: Yes (Other)
  Sender: FDA-Public Use
  Company Number: JP-VERTEX PHARMACEUTICALS INC.-AE-2012-010166

PATIENT
  Age: 66 Year
  Sex: Male

DRUGS (4)
  1. REBETOL [Concomitant]
     Indication: HEPATITIS C
     Route: 048
     Dates: start: 20120613
  2. TELAVIC (TELAPREVIR) [Suspect]
     Indication: HEPATITIS C
     Route: 048
     Dates: start: 20120613, end: 20120703
  3. TELAVIC (TELAPREVIR) [Suspect]
     Route: 048
     Dates: start: 20120704
  4. PEG-INTRON [Concomitant]
     Indication: HEPATITIS C
     Route: 058
     Dates: start: 20120613

REACTIONS (4)
  - BLOOD UREA INCREASED [None]
  - MALAISE [None]
  - DECREASED APPETITE [None]
  - BLOOD CREATININE INCREASED [None]
